FAERS Safety Report 25106458 (Version 1)
Quarter: 2025Q1

REPORT INFORMATION
  Report Type: Report from Study
  Country: CO (occurrence: CO)
  Receive Date: 20250321
  Receipt Date: 20250321
  Transmission Date: 20250409
  Serious: Yes (Other)
  Sender: MYLAN
  Company Number: CO-VIATRISJAPAN-2025M1015491AA

PATIENT
  Age: 10 Year
  Sex: Female
  Weight: 18.1 kg

DRUGS (6)
  1. CYSTAGON [Suspect]
     Active Substance: CYSTEAMINE BITARTRATE
     Indication: Cystinosis
     Dosage: 1500 MILLIGRAM, Q6H (CYSTEAMINE 150 MG WITH A FREQUENCY OF 3, 2, 3 AND 2 CAPSULES EVERY 6 HOURS)
     Dates: start: 20140402
  2. CYSTEAMINE HYDROCHLORIDE [Suspect]
     Active Substance: CYSTEAMINE HYDROCHLORIDE
     Indication: Cystinosis
     Dosage: 4 GTT DROPS, Q6H (2 DROP IN EACH EYES EVERY 6 HOURS)
     Dates: start: 20140402
  3. FERROUS SULFATE [Concomitant]
     Active Substance: FERROUS SULFATE
     Indication: Vitamin supplementation
     Dosage: 20 GTT DROPS, QD (PER DAY)
  4. CALCITRIOL [Concomitant]
     Active Substance: CALCITRIOL
     Indication: Vitamin supplementation
     Dosage: 1 MICROGRAM, QD
  5. ASCORBIC ACID [Concomitant]
     Active Substance: ASCORBIC ACID
     Indication: Vitamin supplementation
     Dosage: 20 GTT DROPS, QD
  6. OMEPRAZOLE [Concomitant]
     Active Substance: OMEPRAZOLE
     Indication: Gastrointestinal disorder
     Dosage: 10 MILLIGRAM, QD (PER DAY)

REACTIONS (1)
  - Congenital aplastic anaemia [Unknown]

NARRATIVE: CASE EVENT DATE: 20250207
